FAERS Safety Report 20221970 (Version 1)
Quarter: 2021Q4

REPORT INFORMATION
  Report Type: Spontaneous
  Country: JP (occurrence: JP)
  Receive Date: 20211223
  Receipt Date: 20211223
  Transmission Date: 20220303
  Serious: Yes (Other)
  Sender: FDA-Public Use
  Company Number: JP-ROCHE-2980062

PATIENT
  Age: 67 Year
  Sex: Female

DRUGS (8)
  1. TARCEVA [Suspect]
     Active Substance: ERLOTINIB HYDROCHLORIDE
     Indication: Non-small cell lung cancer
     Dosage: UNK, UNKNOWN FREQ.
     Route: 065
     Dates: start: 201602
  2. TARCEVA [Suspect]
     Active Substance: ERLOTINIB HYDROCHLORIDE
     Dosage: UNK, UNKNOWN FREQ.
     Route: 065
     Dates: start: 201707
  3. BEVACIZUMAB [Suspect]
     Active Substance: BEVACIZUMAB
     Indication: Non-small cell lung cancer
     Dosage: UNK UNK, UNKNOWN FREQ.
     Route: 065
     Dates: start: 201707
  4. CARBOPLATIN [Concomitant]
     Active Substance: CARBOPLATIN
     Indication: Non-small cell lung cancer
     Dosage: UNK UNK, UNKNOWN FREQ.
     Route: 065
  5. PEMETREXED [Concomitant]
     Active Substance: PEMETREXED
     Indication: Non-small cell lung cancer
     Dosage: UNK UNK, UNKNOWN FREQ.
     Route: 065
  6. NIVOLUMAB [Concomitant]
     Active Substance: NIVOLUMAB
     Indication: Non-small cell lung cancer
     Dosage: UNK UNK, UNKNOWN FREQ.
     Route: 065
     Dates: start: 201806, end: 201812
  7. OSIMERTINIB [Concomitant]
     Active Substance: OSIMERTINIB
     Indication: Non-small cell lung cancer
     Dosage: UNK UNK, UNKNOWN FREQ.
     Route: 065
  8. PACLITAXEL [Concomitant]
     Active Substance: PACLITAXEL
     Indication: Non-small cell lung cancer
     Dosage: UNK UNK, UNKNOWN FREQ.
     Route: 065

REACTIONS (3)
  - Disease progression [Unknown]
  - Metastasis [Unknown]
  - Drug ineffective [Unknown]
